FAERS Safety Report 26082901 (Version 1)
Quarter: 2025Q4

REPORT INFORMATION
  Report Type: Spontaneous
  Country: US (occurrence: None)
  Receive Date: 20251124
  Receipt Date: 20251124
  Transmission Date: 20260117
  Serious: Yes (Disabling)
  Sender: FDA-CTU
  Company Number: None

PATIENT
  Age: 68 Year
  Sex: Male
  Weight: 78.75 kg

DRUGS (3)
  1. BELSOMRA [Suspect]
     Active Substance: SUVOREXANT
     Indication: Insomnia
     Dosage: 1 TABLET AT BEDFTIME ORAL
     Route: 048
     Dates: start: 20251119, end: 20251121
  2. ZOLPIDEM [Concomitant]
     Active Substance: ZOLPIDEM TARTRATE
  3. BELSOMRA [Concomitant]
     Active Substance: SUVOREXANT

REACTIONS (2)
  - Drug ineffective [None]
  - Tinnitus [None]

NARRATIVE: CASE EVENT DATE: 20251121
